FAERS Safety Report 6250373-2 (Version None)
Quarter: 2009Q2

REPORT INFORMATION
  Report Type: 
  Country: None (occurrence: None)
  Receive Date: 20090630
  Receipt Date: 20090622
  Transmission Date: 20091009
  Serious: Yes (Death, Other)
  Sender: FDA-Public Use
  Company Number: US-WYE-H05044508

PATIENT
  Sex: Female

DRUGS (3)
  1. PREMARIN [Suspect]
  2. PROMETRIUM [Suspect]
  3. PROVERA [Suspect]

REACTIONS (2)
  - BREAST CANCER [None]
  - METASTATIC GASTRIC CANCER [None]
